FAERS Safety Report 7355178-7 (Version None)
Quarter: 2011Q1

REPORT INFORMATION
  Report Type: 
  Country: None (occurrence: None)
  Receive Date: 20110316
  Receipt Date: 20110217
  Transmission Date: 20110831
  Serious: No
  Sender: FDA-Public Use
  Company Number: US-B.I. PHARMACEUTICALS,INC./RIDGEFIELD-2011-BP-05808BP

PATIENT
  Sex: Male

DRUGS (5)
  1. RANEXA [Concomitant]
     Indication: MYOCARDIAL INFARCTION
     Dosage: 500 MG
     Route: 048
  2. PRADAXA [Suspect]
     Indication: CARDIAC DISORDER
     Dosage: 300 MG
     Route: 048
     Dates: start: 20110101
  3. STOOL SOFTENER [Concomitant]
     Indication: CONSTIPATION
     Route: 048
  4. ASPIRIN [Concomitant]
     Indication: MYOCARDIAL INFARCTION
     Dosage: 81 MG
     Route: 048
  5. KLOR-CON [Concomitant]
     Indication: MYOCARDIAL INFARCTION
     Route: 048

REACTIONS (1)
  - CONSTIPATION [None]
